FAERS Safety Report 5476452-5 (Version None)
Quarter: 2007Q3

REPORT INFORMATION
  Report Type: 
  Country: None (occurrence: None)
  Receive Date: 20070904
  Receipt Date: 20070710
  Transmission Date: 20080115
  Serious: No
  Sender: FDA-Public Use
  Company Number: PHEH2007US09908

PATIENT
  Sex: 0

DRUGS (3)
  1. DARIFENACIN DRF+TAB(DARIFENACIN HYDROBROMIDE) [Suspect]
     Indication: HYPERTONIC BLADDER
     Dosage: 7.5 MG, ORAL
     Route: 048
  2. CLARITIN [Suspect]
     Indication: HYPERSENSITIVITY
  3. SANCTURA [Concomitant]

REACTIONS (2)
  - DRUG INTERACTION [None]
  - THERAPEUTIC RESPONSE UNEXPECTED [None]
